FAERS Safety Report 24717858 (Version 1)
Quarter: 2024Q4

REPORT INFORMATION
  Report Type: Report from Study
  Country: US (occurrence: US)
  Receive Date: 20241210
  Receipt Date: 20241210
  Transmission Date: 20250115
  Serious: Yes (Death, Hospitalization)
  Sender: TAIHO ONCOLOGY INC
  Company Number: US-TAIHOP-2024-011694

PATIENT
  Age: 64 Year
  Sex: Female

DRUGS (1)
  1. LONSURF [Suspect]
     Active Substance: TIPIRACIL HYDROCHLORIDE\TRIFLURIDINE
     Indication: Rectal cancer metastatic
     Dosage: CYCLE UNKNOWN
     Route: 048
     Dates: start: 202311

REACTIONS (5)
  - Death [Fatal]
  - Gastrointestinal haemorrhage [Unknown]
  - Anaemia [Unknown]
  - Electrolyte imbalance [Unknown]
  - Disease progression [Unknown]

NARRATIVE: CASE EVENT DATE: 20241007
